FAERS Safety Report 4526321-X (Version None)
Quarter: 2004Q4

REPORT INFORMATION
  Report Type: 
  Country: None (occurrence: None)
  Receive Date: 20041210
  Receipt Date: 20041201
  Transmission Date: 20050328
  Serious: Yes (Hospitalization)
  Sender: FDA-Public Use
  Company Number: 2004-12-0020

PATIENT
  Age: 41 Year
  Sex: Female

DRUGS (5)
  1. CELESTONE [Suspect]
     Dosage: ORAL
     Route: 048
     Dates: start: 20040801, end: 20040830
  2. ALTIM [Suspect]
     Dates: start: 20040830, end: 20040830
  3. VOLTAREN [Suspect]
     Dosage: ORAL
     Route: 048
     Dates: start: 20040801, end: 20040906
  4. PANTOPRAZOLE SODIUM [Suspect]
     Dosage: ORAL
     Route: 048
     Dates: start: 20040801, end: 20040906
  5. LAMALINE [Suspect]
     Dates: start: 20040801, end: 20040815

REACTIONS (5)
  - GENITAL PRURITUS FEMALE [None]
  - INJECTION SITE PRURITUS [None]
  - INJECTION SITE URTICARIA [None]
  - STEVENS-JOHNSON SYNDROME [None]
  - TOXIC SKIN ERUPTION [None]
